FAERS Safety Report 5248558-7 (Version None)
Quarter: 2007Q1

REPORT INFORMATION
  Report Type: 
  Country: None (occurrence: None)
  Receive Date: 20070227
  Receipt Date: 20070215
  Transmission Date: 20070707
  Serious: Yes (Other)
  Sender: FDA-Public Use
  Company Number: AU-PFIZER INC-2007013494

PATIENT
  Age: 60 Year
  Sex: Male

DRUGS (4)
  1. NEURONTIN [Suspect]
     Indication: NEURALGIA
  2. LYRICA [Suspect]
     Dosage: DAILY DOSE:150MG
  3. BETALOC [Concomitant]
  4. VALIUM [Concomitant]

REACTIONS (4)
  - COORDINATION ABNORMAL [None]
  - DIARRHOEA [None]
  - EPILEPSY [None]
  - SOMNOLENCE [None]
